FAERS Safety Report 4618879-7 (Version None)
Quarter: 2005Q1

REPORT INFORMATION
  Report Type: 
  Country: None (occurrence: None)
  Receive Date: 20050323
  Receipt Date: 20050310
  Transmission Date: 20050727
  Serious: Yes (Other)
  Sender: FDA-Public Use
  Company Number: 2005043302

PATIENT
  Age: 83 Year
  Sex: Male
  Weight: 61.2356 kg

DRUGS (2)
  1. DETROL LA [Suspect]
     Indication: ILL-DEFINED DISORDER
     Dosage: (DAILY) , ORAL
     Route: 048
  2. ALL OTHER THERAPEUTIC PRODUCTS (ALL OTHER THERAPEUTIC PRODUCTS0 [Concomitant]

REACTIONS (4)
  - DRY MOUTH [None]
  - LIP DRY [None]
  - TREATMENT NONCOMPLIANCE [None]
  - URINARY TRACT OPERATION [None]
